FAERS Safety Report 4915018-X (Version None)
Quarter: 2006Q1

REPORT INFORMATION
  Report Type: 
  Country: None (occurrence: None)
  Receive Date: 20060215
  Receipt Date: 20060215
  Transmission Date: 20060701
  Serious: Yes (Other)
  Sender: FDA-Public Use
  Company Number: None

PATIENT
  Age: 58 Year
  Sex: Male
  Weight: 68.0396 kg

DRUGS (4)
  1. HALDOL [Suspect]
     Indication: SCHIZOPHRENIA
     Dates: start: 20050401, end: 20060101
  2. REMERON [Suspect]
     Indication: SCHIZOPHRENIA
     Dates: start: 20050401, end: 20060101
  3. ZOLOFT [Suspect]
     Dates: start: 20050401, end: 20060101
  4. HYDROCHLORIDE [Suspect]
     Dates: start: 20050401, end: 20060101

REACTIONS (10)
  - CORNEAL REFLEX DECREASED [None]
  - DYSPHAGIA [None]
  - IMMOBILE [None]
  - JAW DISORDER [None]
  - MUSCLE CONTRACTURE [None]
  - MUSCLE TWITCHING [None]
  - RESPIRATORY DISORDER [None]
  - SEDATION [None]
  - TARDIVE DYSKINESIA [None]
  - VOMITING [None]
